FAERS Safety Report 5019073-0 (Version None)
Quarter: 2006Q2

REPORT INFORMATION
  Report Type: 
  Country: None (occurrence: None)
  Receive Date: 20060606
  Receipt Date: 20050719
  Transmission Date: 20061013
  Serious: Yes (Hospitalization, Other)
  Sender: FDA-Public Use
  Company Number: US-BRISTOL-MYERS SQUIBB COMPANY-13044078

PATIENT
  Age: 55 Year
  Sex: Female
  Weight: 104 kg

DRUGS (9)
  1. ERBITUX [Suspect]
     Indication: CERVIX CARCINOMA
     Dosage: INIT TX:02-JUN-05 400 MG/M2/ACT DOSE:800 MG. ACTUAL DOSE THIS INF: 500MG/TOT THIS COURSE = 1500 MG.
     Route: 042
     Dates: start: 20050609, end: 20050609
  2. CISPLATIN [Suspect]
     Indication: CERVIX CARCINOMA
     Dosage: INITIATED 02-JUNE-2005 60 MG/REDUCED TO LEVEL 1 DUE TO FATIGUE/50 MG 23-JUN + 30 JUN.
     Route: 042
     Dates: start: 20050602, end: 20050602
  3. EFFEXOR [Suspect]
     Indication: DEPRESSION
     Route: 048
     Dates: start: 20020101
  4. LEXAPRO [Suspect]
     Indication: DEPRESSION
     Route: 048
     Dates: start: 20021110
  5. PREVACID [Suspect]
     Dates: start: 20020602
  6. PROPOXYPHENE HYDROCHLORIDE [Suspect]
     Indication: PAIN
     Dates: start: 20050713
  7. XANAX [Suspect]
     Indication: ANXIETY
     Route: 048
     Dates: start: 20021110
  8. KLONOPIN [Concomitant]
  9. WELLBUTRIN [Concomitant]
     Indication: DEPRESSION
     Route: 048
     Dates: start: 20021110

REACTIONS (5)
  - CONSTIPATION [None]
  - DIARRHOEA [None]
  - DYSPNOEA [None]
  - FATIGUE [None]
  - PULMONARY EMBOLISM [None]
